FAERS Safety Report 6607065-7 (Version None)
Quarter: 2010Q1

REPORT INFORMATION
  Report Type: 
  Country: None (occurrence: None)
  Receive Date: 20100227
  Receipt Date: 20100202
  Transmission Date: 20100710
  Serious: Yes (Other)
  Sender: FDA-Public Use
  Company Number: US-JNJFOC-20091104676

PATIENT
  Age: 60 Year
  Sex: Male
  Weight: 104.33 kg

DRUGS (5)
  1. LEVAQUIN [Suspect]
     Indication: RESPIRATORY TRACT INFECTION
     Route: 048
  2. TRICOR [Concomitant]
     Route: 065
  3. MEDROL [Concomitant]
     Indication: RESPIRATORY TRACT INFECTION
     Route: 048
  4. SIMVASTATIN [Concomitant]
     Route: 065
  5. ALL OTHER MEDICATION [Concomitant]

REACTIONS (4)
  - ABASIA [None]
  - LIMB INJURY [None]
  - MUSCLE RUPTURE [None]
  - TENDON INJURY [None]
